FAERS Safety Report 19929633 (Version 2)
Quarter: 2021Q4

REPORT INFORMATION
  Report Type: Report from Study
  Country: US (occurrence: US)
  Receive Date: 20211007
  Receipt Date: 20211021
  Transmission Date: 20220303
  Serious: Yes (Hospitalization, Other)
  Sender: FDA-Public Use
  Company Number: US-MERCK HEALTHCARE KGAA-9270688

PATIENT
  Age: 63 Year
  Sex: Male

DRUGS (2)
  1. MAVENCLAD [Suspect]
     Active Substance: CLADRIBINE
     Indication: Relapsing-remitting multiple sclerosis
     Dosage: YEAR ONE MONTH ONE THERAPY: 2 TABLETS ON DAYS 1 TO 3 AND ONE TABLET ON DAYS 4 AND 5
     Route: 048
     Dates: start: 20210308, end: 20210312
  2. MAVENCLAD [Suspect]
     Active Substance: CLADRIBINE
     Dosage: YEAR ONE MONTH TWO THERAPY: ONE TABLETS ON DAYS 1 AND 2 AND ONE TABLET ON DAYS 3 TO 5
     Route: 048
     Dates: start: 20210412, end: 20210416

REACTIONS (2)
  - Pneumonia [Recovered/Resolved]
  - Bronchitis [Unknown]

NARRATIVE: CASE EVENT DATE: 20210614
